FAERS Safety Report 23458606 (Version 1)
Quarter: 2024Q1

REPORT INFORMATION
  Report Type: Spontaneous
  Country: US (occurrence: US)
  Receive Date: 20240130
  Receipt Date: 20240130
  Transmission Date: 20240409
  Serious: Yes (Hospitalization)
  Sender: FDA-Public Use
  Company Number: US-BIOGEN-2024BI01247200

PATIENT
  Sex: Female
  Weight: 55.706 kg

DRUGS (5)
  1. TYSABRI [Suspect]
     Active Substance: NATALIZUMAB
     Indication: Multiple sclerosis
     Dosage: INFUSED OVER 1 HOUR
     Route: 050
     Dates: start: 20200127
  2. DICLOFENAC [Concomitant]
     Active Substance: DICLOFENAC
     Indication: Pain in extremity
     Route: 050
  3. VITAMIN D3 [Concomitant]
     Active Substance: CHOLECALCIFEROL
     Indication: Product used for unknown indication
     Dosage: 2000 INITIAL UNITS, 1 TAB DAILY
     Route: 050
  4. CYANOCOBALAMIN [Concomitant]
     Active Substance: CYANOCOBALAMIN
     Indication: Product used for unknown indication
     Dosage: 1000 MCG/ML INJECTABLE SOLUTION, 1 ML ONCE WEEKLY FOR 4 WEEKS THEN 1 ML ONCE MONTHLY
     Route: 050
  5. ERGOCALCIFEROL [Concomitant]
     Active Substance: ERGOCALCIFEROL
     Indication: Product used for unknown indication
     Dosage: 50000 INITIAL UNITS
     Route: 050

REACTIONS (2)
  - COVID-19 [Unknown]
  - Motor dysfunction [Unknown]
